FAERS Safety Report 21253531 (Version 1)
Quarter: 2022Q3

REPORT INFORMATION
  Report Type: Spontaneous
  Country: US (occurrence: None)
  Receive Date: 20220824
  Receipt Date: 20220824
  Transmission Date: 20221026
  Serious: No
  Sender: FDA-Public Use
  Company Number: None

PATIENT
  Age: 75 Year
  Sex: Male
  Weight: 103.87 kg

DRUGS (1)
  1. METOPROLOL [Suspect]
     Active Substance: METOPROLOL
     Indication: Hypertension
     Dosage: OTHER FREQUENCY : PM;?
     Route: 048

REACTIONS (2)
  - Bradycardia [None]
  - Hypertension [None]

NARRATIVE: CASE EVENT DATE: 20220719
